FAERS Safety Report 21783562 (Version 1)
Quarter: 2022Q4

REPORT INFORMATION
  Report Type: Spontaneous
  Country: US (occurrence: US)
  Receive Date: 20221227
  Receipt Date: 20221227
  Transmission Date: 20230112
  Serious: No
  Sender: FDA-Public Use
  Company Number: US-SA-SAC20221226000360

PATIENT
  Age: 27 Year
  Sex: Male

DRUGS (2)
  1. CEREZYME [Suspect]
     Active Substance: IMIGLUCERASE
     Indication: Gaucher^s disease
     Dosage: 3200 U, QOW
     Route: 042
     Dates: start: 202201
  2. CEREZYME [Suspect]
     Active Substance: IMIGLUCERASE
     Dosage: 1600 U

REACTIONS (2)
  - Bone pain [Unknown]
  - Fatigue [Unknown]
